FAERS Safety Report 5503052-0 (Version None)
Quarter: 2007Q4

REPORT INFORMATION
  Report Type: 
  Country: None (occurrence: None)
  Receive Date: 20071031
  Receipt Date: 20071019
  Transmission Date: 20080405
  Serious: Yes (Hospitalization)
  Sender: FDA-Public Use
  Company Number: JP-ROCHE-486692

PATIENT
  Age: 62 Year
  Sex: Male

DRUGS (7)
  1. PEG-INTERFERON A-2A (RO 25-8310) [Suspect]
     Route: 048
     Dates: start: 20070206, end: 20070227
  2. PEG-INTERFERON A-2A (RO 25-8310) [Suspect]
     Route: 048
     Dates: start: 20070327
  3. GANATON [Concomitant]
     Route: 048
  4. HALCION [Concomitant]
     Route: 048
  5. LENDORMIN [Concomitant]
     Indication: INSOMNIA
     Route: 048
  6. 1 CONCOMITANT DRUG [Concomitant]
     Indication: HEADACHE
     Dosage: DRUG: SG
     Route: 048
  7. DEPAS [Concomitant]
     Route: 048

REACTIONS (1)
  - INTESTINAL OBSTRUCTION [None]
